FAERS Safety Report 8811664 (Version 1)
Quarter: 2012Q4

REPORT INFORMATION
  Report Type: 
  Country: US (occurrence: US)
  Receive Date: 20120927
  Receipt Date: 20120927
  Transmission Date: 20130627
  Serious: No
  Sender: FDA-Public Use
  Company Number: US-MUTUAL PHARMACEUTICAL COMPANY, INC.-BCTM20110065

PATIENT
  Sex: Female

DRUGS (3)
  1. BACTRIM TABLETS [Suspect]
     Indication: STREPTOCOCCAL SORE THROAT
     Route: 065
     Dates: start: 201108, end: 201108
  2. HUMIRA 40 MG/ 0.8 ML PEN [Suspect]
     Indication: CROHN^S DISEASE
     Route: 058
     Dates: start: 200906, end: 201108
  3. HUMIRA 40 MG/ 0.8 ML PEN [Suspect]
     Route: 058
     Dates: start: 201110

REACTIONS (2)
  - Diarrhoea [Recovered/Resolved]
  - Clostridium difficile infection [Recovered/Resolved]
